FAERS Safety Report 4549397-2 (Version None)
Quarter: 2004Q4

REPORT INFORMATION
  Report Type: 
  Country: None (occurrence: None)
  Receive Date: 20041230
  Receipt Date: 20040708
  Transmission Date: 20050328
  Serious: Yes (Hospitalization, Other)
  Sender: FDA-Public Use
  Company Number: 04-07-0986

PATIENT
  Age: 28 Year
  Sex: Male

DRUGS (3)
  1. CLOZAPINE [Suspect]
     Indication: SCHIZOPHRENIA
     Dosage: 200 MG QD ORAL
     Route: 048
     Dates: start: 20040529, end: 20040630
  2. RISPERDAL [Concomitant]
  3. XANAX [Concomitant]

REACTIONS (5)
  - AGRANULOCYTOSIS [None]
  - ANAEMIA [None]
  - PHARYNGITIS [None]
  - PNEUMONIA [None]
  - PYREXIA [None]
